FAERS Safety Report 24553979 (Version 1)
Quarter: 2024Q4

REPORT INFORMATION
  Report Type: Spontaneous
  Country: IT (occurrence: IT)
  Receive Date: 20241028
  Receipt Date: 20241028
  Transmission Date: 20250115
  Serious: Yes (Death)
  Sender: AMGEN
  Company Number: IT-AMGEN-ITASP2024163843

PATIENT
  Age: 71 Year
  Sex: Male
  Weight: 80 kg

DRUGS (12)
  1. BEVACIZUMAB [Suspect]
     Active Substance: BEVACIZUMAB
     Indication: Hepatocellular carcinoma
     Dosage: 1200 MILLIGRAM, Q3WK (ON 29/MAY/2024, HE RECEIVE MOST RECENT DOSE OF BEVACIZUMAB.)
     Route: 040
     Dates: start: 20240417
  2. TIRAGOLUMAB [Suspect]
     Active Substance: TIRAGOLUMAB
     Indication: Hepatocellular carcinoma
     Dosage: ON 29/MAY/2024, HE RECEIVE MOST RECENT DOSE OF BLINDED TIRAGOLUMAB
     Route: 040
     Dates: start: 20240417
  3. ATEZOLIZUMAB [Suspect]
     Active Substance: ATEZOLIZUMAB
     Indication: Hepatocellular carcinoma
     Dosage: ON 29/MAY/2024, HE RECEIVE MOST RECENT DOSE OF ATEZOLIZUMAB.
     Route: 042
     Dates: start: 20240417
  4. NIFEDIPINE [Concomitant]
     Active Substance: NIFEDIPINE
     Dosage: 5 MILLIGRAM, AS NECESSARY
     Route: 048
     Dates: start: 20240508, end: 20240508
  5. NIFEDIPINE [Concomitant]
     Active Substance: NIFEDIPINE
     Dosage: 5 DROP, AS NECESSARY
     Route: 048
     Dates: start: 20240508, end: 20240508
  6. DIAZEPAM [Concomitant]
     Active Substance: DIAZEPAM
     Indication: Product used for unknown indication
     Dosage: 15 DROP, AS NECESSARY
     Route: 048
     Dates: start: 20240529, end: 20240529
  7. HERBALS\SAW PALMETTO [Concomitant]
     Active Substance: HERBALS\SAW PALMETTO
     Dosage: 320 MILLIGRAM, QD
     Route: 048
     Dates: start: 2020, end: 20240826
  8. ESOXX ONE [Concomitant]
     Dosage: 1 GRAIN (0.33 DAY)
     Route: 048
     Dates: start: 20240220
  9. NORVASC [Concomitant]
     Active Substance: AMLODIPINE BESYLATE
     Indication: Hypertension
     Dosage: 5 MILLIGRAM, QD
     Route: 048
     Dates: start: 20240509
  10. CARVEDILOL [Concomitant]
     Active Substance: CARVEDILOL
     Dosage: 6.25 MILLIGRAM, QD
     Route: 065
     Dates: start: 20240321
  11. CARVEDILOL [Concomitant]
     Active Substance: CARVEDILOL
     Dosage: 6.25 MILLIGRAM, QD
     Route: 048
     Dates: start: 20240312
  12. AMLODIPINE [Concomitant]
     Active Substance: AMLODIPINE BESYLATE
     Dosage: 5 MILLIGRAM, QD
     Route: 048
     Dates: start: 20240509, end: 20240618

REACTIONS (3)
  - Death [Fatal]
  - Infusion related reaction [Recovered/Resolved]
  - Hypertension [Recovered/Resolved]

NARRATIVE: CASE EVENT DATE: 20240529
